FAERS Safety Report 9280986 (Version 1)
Quarter: 2013Q2

REPORT INFORMATION
  Report Type: Spontaneous
  Country: US (occurrence: None)
  Receive Date: 20130508
  Receipt Date: 20130508
  Transmission Date: 20140414
  Serious: Yes (Hospitalization)
  Sender: FDA-Public Use
  Company Number: None

PATIENT
  Age: 4 Year
  Sex: Female
  Weight: 13.5 kg

DRUGS (3)
  1. DACTINOMYCIN [Suspect]
  2. DOXORUBICIN HYDROCHLORIDE [Suspect]
  3. VINCRISTINE SULFATE [Suspect]

REACTIONS (1)
  - Venoocclusive liver disease [None]
